FAERS Safety Report 13842320 (Version 1)
Quarter: 2017Q3

REPORT INFORMATION
  Report Type: Spontaneous
  Country: US (occurrence: US)
  Receive Date: 20170807
  Receipt Date: 20170807
  Transmission Date: 20171127
  Serious: Yes (Disabling)
  Sender: FDA-Public Use
  Company Number: None

PATIENT
  Age: 40 Year
  Sex: Female
  Weight: 94.89 kg

DRUGS (4)
  1. IRON [Concomitant]
     Active Substance: IRON
  2. FISH OIL SUPPLEMENT [Concomitant]
     Active Substance: FISH OIL
  3. MIRENA [Suspect]
     Active Substance: LEVONORGESTREL
  4. MULTIVITAMIN [Concomitant]
     Active Substance: VITAMINS

REACTIONS (1)
  - Malignant hypertension [None]

NARRATIVE: CASE EVENT DATE: 20170806
